FAERS Safety Report 7580177-X (Version None)
Quarter: 2011Q2

REPORT INFORMATION
  Report Type: 
  Country: None (occurrence: None)
  Receive Date: 20110629
  Receipt Date: 20110617
  Transmission Date: 20111010
  Serious: Yes (Hospitalization)
  Sender: FDA-Public Use
  Company Number: US-BAYER-201033949NA

PATIENT
  Age: 38 Year
  Sex: Female
  Weight: 149.66 kg

DRUGS (9)
  1. DROSPIRENONE AND ETHINYL ESTRADIOL [Suspect]
     Dosage: UNK UNK, UNK
     Route: 048
     Dates: start: 20050101, end: 20060101
  2. YAZ [Suspect]
     Dosage: UNK UNK, UNK
     Route: 048
     Dates: start: 20050101, end: 20060101
  3. METFORMIN HCL [Concomitant]
  4. FUROSEMIDE [Concomitant]
  5. YASMIN [Suspect]
     Dosage: 1 DF, QD
     Route: 048
     Dates: start: 20050101, end: 20060101
  6. NSAID'S [Concomitant]
  7. METOPROLOL TARTRATE [Concomitant]
  8. POTASSIUM [POTASSIUM] [Concomitant]
  9. IRON [FERROUS SULFATE] [Concomitant]
     Dosage: 2 DF, QD

REACTIONS (2)
  - PAIN [None]
  - PULMONARY EMBOLISM [None]
